FAERS Safety Report 5334904-2 (Version None)
Quarter: 2007Q2

REPORT INFORMATION
  Report Type: 
  Country: None (occurrence: None)
  Receive Date: 20070522
  Receipt Date: 20070510
  Transmission Date: 20071010
  Serious: Yes (Other)
  Sender: FDA-Public Use
  Company Number: 6033214

PATIENT
  Age: 47 Year
  Sex: Male

DRUGS (6)
  1. BISOPROLOL FUMARATE [Suspect]
     Indication: CARDIAC FAILURE CHRONIC
     Dosage: 10 MG (10 MG, 1 IN 1 D) , ORAL
     Route: 048
     Dates: start: 20040319, end: 20070323
  2. DILTIAZEM [Suspect]
     Indication: CARDIAC FAILURE CHRONIC
     Dosage: 240 MG (240 MG, 1 IN 1 D), ORAL
     Route: 048
     Dates: start: 20070319, end: 20070323
  3. NITROGLYCERIN [Concomitant]
  4. SIMVASTATIN [Concomitant]
  5. ASPIRIN [Concomitant]
  6. ENALAPRIL(ENALAPRIL) [Concomitant]

REACTIONS (3)
  - ATRIOVENTRICULAR BLOCK SECOND DEGREE [None]
  - DRUG INTERACTION [None]
  - SINOATRIAL BLOCK [None]
